FAERS Safety Report 6756821-3 (Version None)
Quarter: 2010Q2

REPORT INFORMATION
  Report Type: 
  Country: None (occurrence: None)
  Receive Date: 20100604
  Receipt Date: 20100522
  Transmission Date: 20101027
  Serious: No
  Sender: FDA-Public Use
  Company Number: US-B.I. PHARMACEUTICALS,INC./RIDGEFIELD-2010-BP-05854BP

PATIENT
  Sex: Female

DRUGS (7)
  1. SPIRIVA [Suspect]
     Indication: COUGH
     Dosage: 18 MCG
     Route: 055
     Dates: start: 20100520, end: 20100522
  2. SPIRIVA [Suspect]
     Indication: WHEEZING
  3. SPIRIVA [Suspect]
     Indication: ASTHMA
  4. PLAVIX [Concomitant]
     Indication: CAROTID ARTERY DISEASE
     Dosage: 75 MG
     Route: 048
     Dates: start: 20010101
  5. FUROSEMIDE [Concomitant]
     Indication: CAROTID ARTERY DISEASE
     Route: 048
     Dates: start: 20010101
  6. CARVEDILOL [Concomitant]
     Indication: CAROTID ARTERY DISEASE
     Dosage: 0.625 MG
     Route: 048
     Dates: start: 20010101
  7. ASPIRIN [Concomitant]
     Indication: CAROTID ARTERY DISEASE
     Dosage: 81 MG
     Route: 048
     Dates: start: 20010101

REACTIONS (1)
  - COUGH [None]
